FAERS Safety Report 6938436-7 (Version None)
Quarter: 2010Q3

REPORT INFORMATION
  Report Type: 
  Country: None (occurrence: None)
  Receive Date: 20100824
  Receipt Date: 20100818
  Transmission Date: 20110219
  Serious: Yes (Other)
  Sender: FDA-Public Use
  Company Number: PE-B.I. PHARMACEUTICALS,INC./RIDGEFIELD-2010-RA-00280RA

PATIENT
  Age: 25 Year
  Sex: Male

DRUGS (1)
  1. MOBIC [Suspect]
     Indication: OFF LABEL USE
     Dosage: TOTAL DOSE: 247.5 MG
     Route: 048
     Dates: start: 20100801, end: 20100801

REACTIONS (3)
  - HYPERTENSION [None]
  - OVERDOSE [None]
  - SUICIDE ATTEMPT [None]
